FAERS Safety Report 18688621 (Version 1)
Quarter: 2020Q4

REPORT INFORMATION
  Report Type: Spontaneous
  Country: GB (occurrence: GB)
  Receive Date: 20201231
  Receipt Date: 20201231
  Transmission Date: 20210114
  Serious: Yes (Other)
  Sender: FDA-Public Use
  Company Number: GB-GLAXOSMITHKLINE-GB2020258235

PATIENT
  Sex: Female

DRUGS (3)
  1. DRUG UNSPECIFIED [Concomitant]
     Indication: SEASONAL ALLERGY
     Dosage: UNK
     Route: 065
  2. RELVAR ELLIPTA [Suspect]
     Active Substance: FLUTICASONE FUROATE\VILANTEROL TRIFENATATE
     Indication: ASTHMA
     Dosage: 92/22MCG
     Route: 055
     Dates: start: 202003, end: 20201210
  3. CERELLE [Concomitant]
     Active Substance: DESOGESTREL
     Indication: PRODUCT USED FOR UNKNOWN INDICATION
     Dosage: UNK
     Route: 065

REACTIONS (5)
  - Palpitations [Recovering/Resolving]
  - Rhinorrhoea [Recovering/Resolving]
  - Tachycardia [Recovering/Resolving]
  - Dyspnoea [Recovering/Resolving]
  - Stridor [Recovering/Resolving]
